FAERS Safety Report 11924433 (Version 2)
Quarter: 2016Q2

REPORT INFORMATION
  Report Type: Spontaneous
  Country: JP (occurrence: JP)
  Receive Date: 20160118
  Receipt Date: 20160513
  Transmission Date: 20160815
  Serious: Yes (Life-Threatening, Hospitalization)
  Sender: FDA-Public Use
  Company Number: JP-SA-2016SA003605

PATIENT
  Age: 85 Year
  Sex: Male

DRUGS (17)
  1. PRASUGREL [Suspect]
     Active Substance: PRASUGREL
     Indication: ANTIPLATELET THERAPY
     Dosage: THROUGH FEEDING TUBE
     Route: 048
     Dates: start: 2015, end: 2015
  2. NICORANDIL [Concomitant]
     Active Substance: NICORANDIL
     Indication: ANAESTHESIA
     Dosage: 3 MG/H
  3. EPHEDRINE. [Concomitant]
     Active Substance: EPHEDRINE
     Indication: ANAESTHESIA
     Dosage: BOLUS
  4. MORPHINE [Concomitant]
     Active Substance: MORPHINE
     Dosage: BOLUS
  5. ROCURONIUM [Concomitant]
     Active Substance: ROCURONIUM BROMIDE
     Indication: ANAESTHESIA
  6. FENTANYL. [Concomitant]
     Active Substance: FENTANYL
     Indication: ANAESTHESIA
     Dosage: SUPPLEMENTATION
  7. FENTANYL. [Concomitant]
     Active Substance: FENTANYL
     Indication: ANAESTHESIA
     Dosage: TOTAL: 0.3 MG
  8. NICORANDIL [Concomitant]
     Active Substance: NICORANDIL
     Indication: ANAESTHESIA
     Dosage: INCREASED TO 6 MG/H
     Route: 042
  9. HEPARIN [Suspect]
     Active Substance: HEPARIN SODIUM
     Indication: ANTIPLATELET THERAPY
     Dosage: DOSE:400 UNIT(S)
     Route: 065
     Dates: start: 2015, end: 2015
  10. CLOPIDOGREL BISULFATE. [Suspect]
     Active Substance: CLOPIDOGREL BISULFATE
     Indication: ANTIPLATELET THERAPY
     Route: 065
     Dates: start: 2015, end: 2015
  11. REMIFENTANIL [Concomitant]
     Active Substance: REMIFENTANIL
     Indication: ANAESTHESIA
     Dosage: 0.33-0.13 MCG/KG/MIN
  12. HEPARIN [Suspect]
     Active Substance: HEPARIN SODIUM
     Indication: ANTIPLATELET THERAPY
     Dosage: DOSE:400 UNIT(S)
     Route: 065
     Dates: start: 2015, end: 2015
  13. ASPIRIN. [Suspect]
     Active Substance: ASPIRIN
     Indication: ANTIPLATELET THERAPY
     Route: 065
     Dates: start: 2015, end: 2015
  14. PROPOFOL. [Concomitant]
     Active Substance: PROPOFOL
     Indication: ANAESTHESIA
     Dosage: 2.5-1.3 MCG/ML
  15. ASPIRIN. [Suspect]
     Active Substance: ASPIRIN
     Indication: ANTIPLATELET THERAPY
     Dosage: THROUGH FEEDING TUBE
     Route: 048
     Dates: start: 2015, end: 2015
  16. NICORANDIL [Concomitant]
     Active Substance: NICORANDIL
     Indication: ANAESTHESIA
     Dosage: CONTINUOUS
  17. PHENYLEPHRINE [Concomitant]
     Active Substance: PHENYLEPHRINE\PHENYLEPHRINE HYDROCHLORIDE
     Indication: ANAESTHESIA

REACTIONS (14)
  - Blood creatine phosphokinase MB increased [Recovered/Resolved]
  - Chest pain [Recovered/Resolved]
  - Drug ineffective [Unknown]
  - Myocardial infarction [Recovered/Resolved]
  - Blood creatine phosphokinase increased [Recovered/Resolved]
  - Blood pressure increased [Recovered/Resolved]
  - Procedural haemorrhage [Recovering/Resolving]
  - Activated partial thromboplastin time prolonged [Unknown]
  - Ischaemia [Recovering/Resolving]
  - Electrocardiogram ST segment elevation [Recovered/Resolved]
  - Electrocardiogram abnormal [Recovered/Resolved]
  - Haemodynamic instability [Recovered/Resolved]
  - Heart rate increased [Recovered/Resolved]
  - Vascular stent thrombosis [Recovered/Resolved]

NARRATIVE: CASE EVENT DATE: 20150421
